FAERS Safety Report 19952840 (Version 2)
Quarter: 2021Q4

REPORT INFORMATION
  Report Type: Spontaneous
  Country: US (occurrence: US)
  Receive Date: 20211013
  Receipt Date: 20211028
  Transmission Date: 20220303
  Serious: Yes (Hospitalization, Other)
  Sender: FDA-Public Use
  Company Number: 2021A763787

PATIENT
  Age: 24398 Day
  Sex: Male
  Weight: 94.8 kg

DRUGS (2)
  1. FASENRA [Suspect]
     Active Substance: BENRALIZUMAB
     Indication: Asthma
     Dosage: UNKNOWN
     Route: 058
     Dates: start: 20210621, end: 20210821
  2. ELIQUIS [Concomitant]
     Active Substance: APIXABAN
     Route: 065
     Dates: start: 20210826

REACTIONS (2)
  - Pulmonary embolism [Unknown]
  - Haemoptysis [Unknown]

NARRATIVE: CASE EVENT DATE: 20210822
